FAERS Safety Report 9396197 (Version 3)
Quarter: 2013Q3

REPORT INFORMATION
  Report Type: Spontaneous
  Country: US (occurrence: US)
  Receive Date: 20130711
  Receipt Date: 20130903
  Transmission Date: 20140515
  Serious: Yes (Hospitalization, Other)
  Sender: FDA-Public Use
  Company Number: US-BAXTER-2013BAX026131

PATIENT
  Sex: Female

DRUGS (1)
  1. DIANEAL LOW CALCIUM [Suspect]
     Indication: PERITONEAL DIALYSIS
     Route: 033
     Dates: start: 201301

REACTIONS (7)
  - Osteomyelitis [Recovered/Resolved]
  - Vascular occlusion [Recovered/Resolved]
  - Poor peripheral circulation [Recovered/Resolved]
  - Incision site infection [Recovering/Resolving]
  - Post procedural infection [Recovering/Resolving]
  - Localised infection [Recovering/Resolving]
  - Soft tissue necrosis [Recovered/Resolved]
